FAERS Safety Report 8272583-5 (Version None)
Quarter: 2012Q2

REPORT INFORMATION
  Report Type: 
  Country: None (occurrence: None)
  Receive Date: 20120410
  Receipt Date: 20120402
  Transmission Date: 20120825
  Serious: Yes (Disabling)
  Sender: FDA-Public Use
  Company Number: US-MERCK-1204USA00493

PATIENT
  Sex: Female

DRUGS (5)
  1. FOSAMAX [Suspect]
     Route: 048
     Dates: start: 20050101, end: 20110101
  2. RECLAST [Suspect]
     Route: 065
  3. ALENDRONATE SODIUM [Suspect]
     Route: 048
  4. ZOMETA [Suspect]
     Route: 065
  5. BONIVA [Suspect]
     Route: 065

REACTIONS (4)
  - FEMUR FRACTURE [None]
  - BONE DISORDER [None]
  - PAIN [None]
  - MULTIPLE INJURIES [None]
